APPROVED DRUG PRODUCT: CLOBETASOL PROPIONATE (EMOLLIENT)
Active Ingredient: CLOBETASOL PROPIONATE
Strength: 0.05%
Dosage Form/Route: CREAM;TOPICAL
Application: A075633 | Product #001 | TE Code: AB2
Applicant: SUN PHARMA CANADA INC
Approved: May 17, 2000 | RLD: No | RS: No | Type: RX